FAERS Safety Report 24342462 (Version 1)
Quarter: 2024Q3

REPORT INFORMATION
  Report Type: Spontaneous
  Country: CN (occurrence: CN)
  Receive Date: 20240920
  Receipt Date: 20240920
  Transmission Date: 20241016
  Serious: Yes (Death)
  Sender: NOVITIUM PHARMA
  Company Number: CN-NOVITIUMPHARMA-2024CNNVP01951

PATIENT
  Age: 55 Year
  Sex: Male

DRUGS (5)
  1. PREDNISONE [Suspect]
     Active Substance: PREDNISONE
     Indication: Natural killer-cell lymphoblastic lymphoma
  2. CYCLOPHOSPHAMIDE [Concomitant]
     Active Substance: CYCLOPHOSPHAMIDE
     Indication: Natural killer-cell lymphoblastic lymphoma
  3. VINCRISTINE [Concomitant]
     Active Substance: VINCRISTINE
     Indication: Natural killer-cell lymphoblastic lymphoma
  4. ETOPOSIDE [Concomitant]
     Active Substance: ETOPOSIDE
     Indication: Natural killer-cell lymphoblastic lymphoma
  5. PEGASPARGASE [Concomitant]
     Active Substance: PEGASPARGASE
     Indication: Natural killer-cell lymphoblastic lymphoma

REACTIONS (1)
  - Disease progression [Fatal]
